FAERS Safety Report 18557081 (Version 1)
Quarter: 2020Q4

REPORT INFORMATION
  Report Type: Spontaneous
  Country: TR (occurrence: TR)
  Receive Date: 20201129
  Receipt Date: 20201129
  Transmission Date: 20210114
  Serious: Yes (Hospitalization, Other)
  Sender: FDA-Public Use
  Company Number: TR-NOVOPROD-769147

PATIENT
  Age: 53 Year
  Sex: Male
  Weight: 92 kg

DRUGS (6)
  1. PLETAL [Concomitant]
     Active Substance: CILOSTAZOL
     Dosage: 10 MG, BID
     Route: 048
  2. HIBOR [Concomitant]
     Dosage: 3500 IU /0.2 ML ONCE A DAY
     Route: 058
  3. TIOPATI [Concomitant]
     Dosage: 600 MG, QD
     Route: 048
  4. NOVORAPID [Suspect]
     Active Substance: INSULIN ASPART
     Indication: TYPE 1 DIABETES MELLITUS
     Dosage: UNK
     Route: 065
  5. APIDRA SOLOSTAR [Concomitant]
     Active Substance: INSULIN GLULISINE
     Indication: TYPE 1 DIABETES MELLITUS
     Dosage: 15 IU, TID
     Route: 058
  6. LANTUS [Concomitant]
     Active Substance: INSULIN GLARGINE
     Indication: TYPE 1 DIABETES MELLITUS
     Dosage: 15 IU, BID
     Route: 058

REACTIONS (3)
  - Blood glucose increased [Not Recovered/Not Resolved]
  - Wound [Unknown]
  - Hypoaesthesia [Unknown]
